FAERS Safety Report 8859918 (Version 4)
Quarter: 2014Q1

REPORT INFORMATION
  Report Type: Report from Study
  Country: JP (occurrence: JP)
  Receive Date: 20121025
  Receipt Date: 20140124
  Transmission Date: 20141002
  Serious: Yes (Other)
  Sender: FDA-Public Use
  Company Number: JP-VERTEX PHARMACEUTICAL INC.-AE-2012-010048

PATIENT
  Age: 56 Year
  Sex: Female

DRUGS (12)
  1. URSO [Concomitant]
     Dosage: 600 MG, QD
     Route: 048
     Dates: start: 20111108, end: 20120613
  2. RHYTHMY [Concomitant]
     Dosage: 1 DF, QD, PRN
     Route: 048
     Dates: start: 20120530, end: 20120607
  3. HIRUDOID [Concomitant]
     Dosage: 25 G, QD
     Route: 062
     Dates: start: 20120731, end: 20120731
  4. ALLEGRA [Concomitant]
     Dosage: 120 MG, QD
     Route: 048
     Dates: start: 20120809, end: 20120925
  5. VX-950 (TELAPREVIR) [Suspect]
     Indication: CHRONIC HEPATITIS C
     Dosage: 1500 MG, QD
     Route: 048
     Dates: start: 20120522, end: 20120703
  6. REBETOL [Suspect]
     Indication: CHRONIC HEPATITIS C
     Dosage: 800 MG, QD
     Route: 048
     Dates: start: 20120522, end: 20120611
  7. REBETOL [Suspect]
     Dosage: 600 MG, QD
     Route: 048
     Dates: start: 20120612, end: 20120625
  8. REBETOL [Suspect]
     Dosage: 400 MG, QD
     Dates: start: 20120626, end: 20120703
  9. PEGINTRON [Suspect]
     Indication: CHRONIC HEPATITIS C
     Dosage: 1.59 ?G/KG, QW
     Route: 058
     Dates: start: 20120522, end: 20120522
  10. PEGINTRON [Suspect]
     Dosage: 1.5 ?G/KG, QW
     Route: 058
     Dates: start: 20120529, end: 20120529
  11. PEGINTRON [Suspect]
     Dosage: 0.67 ?G/KG, QW
     Route: 058
     Dates: start: 20120605, end: 20120626
  12. URSO [Concomitant]
     Dosage: 300 MG, QD
     Route: 048
     Dates: start: 20110802, end: 20111107

REACTIONS (3)
  - Retinopathy [Recovered/Resolved]
  - Haemoglobin decreased [Recovered/Resolved]
  - Neutrophil count decreased [Recovered/Resolved]
